FAERS Safety Report 14979320 (Version 2)
Quarter: 2018Q2

REPORT INFORMATION
  Report Type: Report from Study
  Country: CR (occurrence: CR)
  Receive Date: 20180606
  Receipt Date: 20180620
  Transmission Date: 20180711
  Serious: Yes (Other)
  Sender: FDA-Public Use
  Company Number: PHHY2015CR115722

PATIENT
  Sex: Male
  Weight: 75 kg

DRUGS (4)
  1. TASIGNA [Suspect]
     Active Substance: NILOTINIB
     Dosage: 200 MG, 2 EVERY 12 HOURS
     Route: 065
  2. TASIGNA [Suspect]
     Active Substance: NILOTINIB
     Dosage: 400 MG, Q12H
     Route: 065
     Dates: start: 201307
  3. TASIGNA [Suspect]
     Active Substance: NILOTINIB
     Indication: CHRONIC MYELOID LEUKAEMIA
     Dosage: 1 DF, Q12H (2 HS BEFORE EATING)
     Route: 065
     Dates: start: 201304
  4. TASIGNA [Suspect]
     Active Substance: NILOTINIB
     Dosage: UNK
     Route: 065
     Dates: start: 20171208

REACTIONS (23)
  - Chronic myeloid leukaemia recurrent [Unknown]
  - Nail disorder [Unknown]
  - Post procedural complication [Unknown]
  - Hypotension [Unknown]
  - Dizziness [Not Recovered/Not Resolved]
  - Malaise [Unknown]
  - Chest discomfort [Unknown]
  - Diabetes mellitus [Unknown]
  - Pain [Recovering/Resolving]
  - Fatigue [Unknown]
  - Asthenia [Unknown]
  - Musculoskeletal discomfort [Unknown]
  - Weight decreased [Unknown]
  - Nausea [Unknown]
  - Blood pressure abnormal [Unknown]
  - Cold sweat [Unknown]
  - Hypertension [Unknown]
  - Tooth fracture [Unknown]
  - Onychomycosis [Unknown]
  - Dental plaque [Recovering/Resolving]
  - Nail discolouration [Unknown]
  - Eye disorder [Unknown]
  - Abscess [Recovering/Resolving]
